FAERS Safety Report 4395289-1 (Version None)
Quarter: 2004Q3

REPORT INFORMATION
  Report Type: 
  Country: None (occurrence: None)
  Receive Date: 20040707
  Receipt Date: 20040621
  Transmission Date: 20050211
  Serious: Yes (Hospitalization)
  Sender: FDA-Public Use
  Company Number: DSA_24594_2004

PATIENT
  Age: 62 Year
  Sex: Female

DRUGS (1)
  1. ENALAPRIL MALEATE [Suspect]
     Indication: HYPERTENSION
     Dosage: 10 MG QD PO
     Route: 048
     Dates: start: 19840101

REACTIONS (3)
  - CEREBROSPINAL FLUID LEAKAGE [None]
  - INTRACRANIAL PRESSURE INCREASED [None]
  - SINUS HEADACHE [None]
